FAERS Safety Report 7133223-1 (Version None)
Quarter: 2010Q4

REPORT INFORMATION
  Report Type: 
  Country: None (occurrence: None)
  Receive Date: 20101117
  Receipt Date: 20101104
  Transmission Date: 20110411
  Serious: Yes (Other)
  Sender: FDA-Public Use
  Company Number: US-1183769

PATIENT
  Age: 56 Year
  Sex: Female

DRUGS (3)
  1. CIPRODEX [Suspect]
     Indication: CORNEAL ABRASION
     Dosage: 1-2 GTTS Q2H WHILE AWAKE X2D; THEN 1-2 GTRTS Q4H X5D OPHTHALMIC
     Route: 047
     Dates: start: 20100829, end: 20100906
  2. PROZAC [Concomitant]
  3. XANAX [Concomitant]

REACTIONS (8)
  - CORNEAL INFILTRATES [None]
  - DRUG DISPENSING ERROR [None]
  - EYE IRRITATION [None]
  - EYE PRURITUS [None]
  - MIGRAINE [None]
  - PHOTOPSIA [None]
  - VISUAL FIELD DEFECT [None]
  - VISUAL IMPAIRMENT [None]
